FAERS Safety Report 10744525 (Version 1)
Quarter: 2015Q1

REPORT INFORMATION
  Report Type: Spontaneous
  Country: CN (occurrence: None)
  Receive Date: 20150126
  Receipt Date: 20150126
  Transmission Date: 20150721
  Serious: Yes (Hospitalization)
  Sender: FDA-Public Use
  Company Number: CN-2015VAL000056

PATIENT
  Age: 59 Year
  Sex: Female

DRUGS (1)
  1. LOTENSIN [Suspect]
     Active Substance: BENAZEPRIL HYDROCHLORIDE
     Indication: HYPERTENSION
     Dosage: 5 MG, PER DAY, ORAL
     Route: 048
     Dates: start: 20061010, end: 20140628

REACTIONS (3)
  - Incorrect drug administration duration [None]
  - Hyperlipidaemia [None]
  - Cerebral infarction [None]

NARRATIVE: CASE EVENT DATE: 20140628
